FAERS Safety Report 10225964 (Version 1)
Quarter: 2014Q2

REPORT INFORMATION
  Report Type: Spontaneous
  Country: IT (occurrence: IT)
  Receive Date: 20140609
  Receipt Date: 20140609
  Transmission Date: 20141212
  Serious: Yes (Hospitalization)
  Sender: FDA-Public Use
  Company Number: IT-WATSON-2013-25430

PATIENT
  Age: 58 Year
  Sex: Male

DRUGS (8)
  1. ATENOLOL (UNKNOWN) [Suspect]
     Indication: HYPERTENSION
     Route: 048
     Dates: start: 20070101, end: 20130620
  2. KCL-RETARD [Suspect]
     Indication: HYPERTENSION
     Route: 048
     Dates: start: 20070101, end: 20130620
  3. DRONEDARONE HYDROCHLORIDE [Suspect]
     Indication: ATRIAL FIBRILLATION
     Route: 048
     Dates: start: 20070101, end: 20130620
  4. LASIX 25 MG TABLET [Concomitant]
     Indication: PRODUCT USED FOR UNKNOWN INDICATION
     Route: 065
  5. COUMADIN 5 MG TABLET [Concomitant]
     Indication: PRODUCT USED FOR UNKNOWN INDICATION
  6. CRESTOR 10 MG FILM COATED TABLET [Concomitant]
     Indication: PRODUCT USED FOR UNKNOWN INDICATION
  7. PANTORC 20 MG GASTRORESISTANT TABLET [Concomitant]
     Indication: PRODUCT USED FOR UNKNOWN INDICATION
     Route: 065
  8. FELODIPINE [Concomitant]
     Indication: PRODUCT USED FOR UNKNOWN INDICATION
     Route: 065

REACTIONS (2)
  - Hyperkalaemia [Recovered/Resolved]
  - Nodal arrhythmia [Recovered/Resolved]
